FAERS Safety Report 9717673 (Version 1)
Quarter: 2013Q4

REPORT INFORMATION
  Report Type: Spontaneous
  Country: US (occurrence: None)
  Receive Date: 20131125
  Receipt Date: 20131125
  Transmission Date: 20140711
  Serious: Yes (Disabling, Other)
  Sender: FDA-Public Use
  Company Number: AUR-APL-2013-09757

PATIENT
  Age: 54 Year
  Sex: Male

DRUGS (12)
  1. ATENOLOL [Suspect]
     Indication: HYPERTENSION
     Dosage: 50 MG (50 MG, 1 IN 1 D), ORAL
     Dates: start: 2006
  2. OMEPRAZOLE [Suspect]
     Indication: PRODUCT USED FOR UNKNOWN INDICATION
     Dosage: 20 OR 40 MG DAILY, ORAL
     Dates: start: 20131021, end: 20131021
  3. NEXIUM (ESOMEPRAZOLE MAGNESIUM) [Suspect]
     Indication: PEPTIC ULCER HAEMORRHAGE
     Dosage: 40 MG (40 MG, 1 IN 1 D), ORAL
     Dates: start: 20060706, end: 20131021
  4. SEROQUEL [Suspect]
     Indication: SCHIZOPHRENIA
     Dosage: 300 MG (100 MG, 3 IN 1 D), ORAL
     Dates: start: 2010
  5. LANTUS (INSULIN GLARGINE) [Concomitant]
  6. SIMVASTATIN (SIMVASTATIN0 [Concomitant]
  7. BENAZEPRIL (BENAZEPRIL) [Concomitant]
  8. METFORMIN (METFORMIN) [Concomitant]
  9. FAMOTIDINE (FAMOTIDINE) [Concomitant]
  10. CLONAZEPAM (CLONAZEPAM) (CLONAZEPAM) [Concomitant]
  11. DICLOXACILLIN (DICOLXACILLIN) [Concomitant]
  12. CIMETIDINE (CIMETIDINE) [Concomitant]

REACTIONS (14)
  - Drug dose omission [None]
  - Circumstance or information capable of leading to medication error [None]
  - Abnormal faeces [None]
  - Helicobacter test positive [None]
  - Paraesthesia [None]
  - Hypoaesthesia [None]
  - Drug hypersensitivity [None]
  - Weight decreased [None]
  - Aphagia [None]
  - Post-traumatic stress disorder [None]
  - Schizophrenia, paranoid type [None]
  - Dyspepsia [None]
  - Inappropriate schedule of drug administration [None]
  - Eructation [None]
